FAERS Safety Report 19679862 (Version 1)
Quarter: 2021Q3

REPORT INFORMATION
  Report Type: Spontaneous
  Country: US (occurrence: US)
  Receive Date: 20210809
  Receipt Date: 20210809
  Transmission Date: 20211014
  Serious: Yes (Hospitalization)
  Sender: FDA-Public Use
  Company Number: None

PATIENT
  Sex: Female

DRUGS (3)
  1. TADALAFIL. [Suspect]
     Active Substance: TADALAFIL
  2. BOTOX [Concomitant]
     Active Substance: ONABOTULINUMTOXINA
  3. UBRELVY [Concomitant]
     Active Substance: UBROGEPANT

REACTIONS (3)
  - Blood pressure abnormal [None]
  - Hip arthroplasty [None]
  - Therapy interrupted [None]
